FAERS Safety Report 5415499-1 (Version None)
Quarter: 2007Q3

REPORT INFORMATION
  Report Type: 
  Country: None (occurrence: None)
  Receive Date: 20070815
  Receipt Date: 20070802
  Transmission Date: 20080115
  Serious: Yes (Hospitalization, Other)
  Sender: FDA-Public Use
  Company Number: JP-MERCK-0406USA02269

PATIENT
  Age: 56 Year
  Sex: Male

DRUGS (6)
  1. PEPCID RPD [Suspect]
     Route: 048
     Dates: start: 20040401, end: 20040615
  2. PERSANTINE [Suspect]
     Route: 048
     Dates: start: 20040401, end: 20040617
  3. RYTHMODAN [Suspect]
     Route: 048
     Dates: start: 20040401, end: 20040615
  4. CANDESARTAN CILEXETIL [Suspect]
     Route: 048
     Dates: start: 20040401, end: 20040615
  5. WARFARIN [Suspect]
     Route: 048
     Dates: start: 20040401, end: 20040615
  6. WARFARIN [Suspect]
     Route: 048
     Dates: start: 20040701

REACTIONS (1)
  - HEPATITIS FULMINANT [None]
